FAERS Safety Report 22240350 (Version 5)
Quarter: 2023Q2

REPORT INFORMATION
  Report Type: Spontaneous
  Country: US (occurrence: US)
  Receive Date: 20230421
  Receipt Date: 20230602
  Transmission Date: 20230721
  Serious: No
  Sender: FDA-Public Use
  Company Number: US-PFIZER INC-202300165391

PATIENT
  Age: 37 Year
  Sex: Female

DRUGS (1)
  1. XELJANZ XR [Suspect]
     Active Substance: TOFACITINIB CITRATE
     Indication: Rheumatoid arthritis
     Dosage: 11 MG, 1X/DAY
     Route: 048
     Dates: start: 202303

REACTIONS (15)
  - Visual impairment [Unknown]
  - Intermenstrual bleeding [Not Recovered/Not Resolved]
  - Menstruation delayed [Not Recovered/Not Resolved]
  - Menstruation irregular [Not Recovered/Not Resolved]
  - Sinusitis [Unknown]
  - Thyroid disorder [Not Recovered/Not Resolved]
  - Anti-thyroid antibody increased [Not Recovered/Not Resolved]
  - Fatigue [Unknown]
  - Menstrual disorder [Unknown]
  - Nausea [Unknown]
  - Feeling abnormal [Unknown]
  - Pain [Unknown]
  - Myalgia [Unknown]
  - Epistaxis [Not Recovered/Not Resolved]
  - Migraine [Not Recovered/Not Resolved]

NARRATIVE: CASE EVENT DATE: 20230101
